FAERS Safety Report 5689976-2 (Version None)
Quarter: 2008Q2

REPORT INFORMATION
  Report Type: 
  Country: None (occurrence: None)
  Receive Date: 20080401
  Receipt Date: 20070504
  Transmission Date: 20081010
  Serious: No
  Sender: FDA-Public Use
  Company Number: A0650102A

PATIENT
  Age: 12 Year
  Sex: Male

DRUGS (3)
  1. FLOVENT [Suspect]
     Indication: ASTHMA
     Route: 055
  2. ALBUTEROL [Suspect]
     Indication: ASTHMA
     Route: 055
  3. XOPENEX [Suspect]
     Indication: ASTHMA
     Route: 055

REACTIONS (3)
  - AGITATION [None]
  - HEADACHE [None]
  - HEART RATE INCREASED [None]
